FAERS Safety Report 8202185-8 (Version None)
Quarter: 2012Q1

REPORT INFORMATION
  Report Type: 
  Country: None (occurrence: None)
  Receive Date: 20120308
  Receipt Date: 20120227
  Transmission Date: 20120608
  Serious: Yes (Other)
  Sender: FDA-Public Use
  Company Number: JPI-P-019513

PATIENT
  Age: 47 Year
  Sex: Female

DRUGS (5)
  1. XYREM [Suspect]
     Indication: NARCOLEPSY
     Dosage: 5 GM (2.5 GM,2 IN 1 D),ORAL ; (TITRATING DOSE),ORAL ; 9 GM (4.5 GM,2 IN 1 D),ORAL
     Route: 048
     Dates: start: 20071101
  2. XYREM [Suspect]
     Indication: NARCOLEPSY
     Dosage: 5 GM (2.5 GM,2 IN 1 D),ORAL ; (TITRATING DOSE),ORAL ; 9 GM (4.5 GM,2 IN 1 D),ORAL
     Route: 048
     Dates: start: 20071114
  3. TRAMADOL HCL [Concomitant]
  4. CLONAZEPAM [Concomitant]
  5. DULOXETINE HYDROCHLORIDE [Concomitant]

REACTIONS (3)
  - SUPRAVENTRICULAR TACHYCARDIA [None]
  - HEADACHE [None]
  - PANIC ATTACK [None]
